FAERS Safety Report 19294238 (Version 1)
Quarter: 2021Q2

REPORT INFORMATION
  Report Type: Spontaneous
  Country: US (occurrence: US)
  Receive Date: 20210524
  Receipt Date: 20210524
  Transmission Date: 20210717
  Serious: No
  Sender: FDA-Public Use
  Company Number: None

PATIENT
  Age: 53 Year
  Sex: Female
  Weight: 83.25 kg

DRUGS (7)
  1. ARMOUR THYROID [Concomitant]
     Active Substance: THYROID, PORCINE
  2. BUPRENORPHINE 15MCG PATCH WEEKLY [Suspect]
     Active Substance: BUPRENORPHINE
     Indication: NEURALGIA
     Dosage: ?          QUANTITY:4 PATCH(ES);OTHER FREQUENCY:ONCE WEEKLY;?
     Route: 062
  3. NORTRIPTYLINE [Concomitant]
     Active Substance: NORTRIPTYLINE
  4. VITAMIN B [Concomitant]
     Active Substance: VITAMIN B
  5. SPINAL STIMULATOR?BOSTON SCIENTIFIC [Concomitant]
  6. TRAMADOL. [Concomitant]
     Active Substance: TRAMADOL
  7. VITAMIN D [Concomitant]
     Active Substance: VITAMIN D NOS

REACTIONS (1)
  - Gastric hypomotility [None]

NARRATIVE: CASE EVENT DATE: 20210304
